FAERS Safety Report 9666903 (Version 1)
Quarter: 2013Q4

REPORT INFORMATION
  Report Type: Spontaneous
  Country: US (occurrence: US)
  Receive Date: 20131104
  Receipt Date: 20131104
  Transmission Date: 20140711
  Serious: No
  Sender: FDA-Public Use
  Company Number: US-BIOGENIDEC-2013BI088230

PATIENT
  Age: 56 Year
  Sex: Female

DRUGS (11)
  1. TECFIDERA [Suspect]
     Indication: MULTIPLE SCLEROSIS
     Route: 048
     Dates: start: 201305
  2. AMANTADINE [Concomitant]
  3. BUPROPIAN [Concomitant]
  4. VESICARE [Concomitant]
  5. MECLIZINE [Concomitant]
  6. VITAMIN C [Concomitant]
  7. ASA [Concomitant]
  8. CITALOPRAM [Concomitant]
  9. FLONASE [Concomitant]
  10. BENADRYL [Concomitant]
  11. PROMETHAZINE [Concomitant]

REACTIONS (2)
  - Abdominal distension [Unknown]
  - Weight increased [Unknown]
